FAERS Safety Report 25004854 (Version 1)
Quarter: 2025Q1

REPORT INFORMATION
  Report Type: Spontaneous
  Country: US (occurrence: US)
  Receive Date: 20250224
  Receipt Date: 20250224
  Transmission Date: 20250409
  Serious: Yes (Hospitalization, Other)
  Sender: LANTHEUS MEDICAL IMAGING
  Company Number: US-LANTHEUS-LMI-2024-00158

PATIENT
  Age: 34 Year
  Sex: Female
  Weight: 110 kg

DRUGS (3)
  1. DEFINITY RT [Suspect]
     Active Substance: PERFLUTREN
     Indication: Echocardiogram
     Route: 042
     Dates: start: 20240206, end: 20240206
  2. AMLODIPINE [Concomitant]
     Active Substance: AMLODIPINE BESYLATE
     Indication: Product used for unknown indication
  3. CHOLECALCIFEROL [Concomitant]
     Active Substance: CHOLECALCIFEROL
     Indication: Product used for unknown indication

REACTIONS (7)
  - Syncope [Recovered/Resolved]
  - Unresponsive to stimuli [Recovered/Resolved]
  - Electrocardiogram abnormal [Recovered/Resolved]
  - Pulse absent [Recovered/Resolved]
  - Anxiety [Recovered/Resolved]
  - Sinus tachycardia [Unknown]
  - Oxygen saturation abnormal [Unknown]

NARRATIVE: CASE EVENT DATE: 20240206
